FAERS Safety Report 5942820-8 (Version None)
Quarter: 2008Q4

REPORT INFORMATION
  Report Type: 
  Country: None (occurrence: None)
  Receive Date: 20081103
  Receipt Date: 20081024
  Transmission Date: 20090506
  Serious: Yes (Hospitalization, Other)
  Sender: FDA-Public Use
  Company Number: 2008BI018431

PATIENT
  Age: 66 Year
  Sex: Female

DRUGS (4)
  1. AVONEX [Suspect]
     Indication: MULTIPLE SCLEROSIS
     Dosage: 30 UG; QW; IM
     Route: 030
     Dates: start: 20010503
  2. AVONEX [Suspect]
  3. CON MEDS [Concomitant]
  4. PREV MEDS [Concomitant]

REACTIONS (2)
  - GASTRIC CANCER [None]
  - ULCER HAEMORRHAGE [None]
